FAERS Safety Report 17589480 (Version 1)
Quarter: 2020Q1

REPORT INFORMATION
  Report Type: Spontaneous
  Country: US (occurrence: US)
  Receive Date: 20200327
  Receipt Date: 20200327
  Transmission Date: 20200409
  Serious: No
  Sender: FDA-Public Use
  Company Number: US-ALLERGAN-1942848US

PATIENT
  Age: 72 Year
  Sex: Female

DRUGS (4)
  1. LUMIGAN [Suspect]
     Active Substance: BIMATOPROST
     Indication: INTRAOCULAR PRESSURE INCREASED
     Dosage: 2 GTT, QPM
     Route: 047
     Dates: start: 2018, end: 20191019
  2. UNSPECIFIED MEDICATION FOR ESSENTIAL TREMORS [Concomitant]
     Indication: TREMOR
     Dosage: UNK
     Dates: start: 201910
  3. UNSPECIFIED MEDICATION FOR HIGH BLOOD PRESSURE [Concomitant]
     Indication: HYPERTENSION
  4. UNSPECIFIED MEDICATION FOR THYROID ISSUE [Concomitant]
     Indication: THYROID DISORDER

REACTIONS (3)
  - Product dose omission [Unknown]
  - Superficial injury of eye [Unknown]
  - Accidental exposure to product [Unknown]

NARRATIVE: CASE EVENT DATE: 20191019
